FAERS Safety Report 8562983 (Version 2)
Quarter: 2013Q1

REPORT INFORMATION
  Report Type: Spontaneous
  Country: US (occurrence: US)
  Receive Date: 20120515
  Receipt Date: 20130111
  Transmission Date: 20140127
  Serious: Yes (Hospitalization, Other)
  Sender: FDA-Public Use
  Company Number: US-BAYER-2012-046821

PATIENT
  Age: 34 Year
  Sex: Female
  Weight: 59.86 kg

DRUGS (2)
  1. YAZ [Suspect]
     Indication: CONTRACEPTION
     Dosage: UNK
     Dates: start: 20080625, end: 20090723
  2. YASMIN [Suspect]
     Indication: CONTRACEPTION
     Dosage: UNK
     Dates: start: 20040618, end: 20040805

REACTIONS (14)
  - Myocardial infarction [None]
  - Colitis ischaemic [None]
  - Arteriospasm coronary [None]
  - Arrhythmia [None]
  - Chest pain [None]
  - Chest discomfort [None]
  - Palpitations [None]
  - Chest discomfort [None]
  - Fear of disease [None]
  - Anxiety [None]
  - Injury [None]
  - Pain [None]
  - Emotional distress [None]
  - General physical health deterioration [None]
